FAERS Safety Report 7030167-0 (Version None)
Quarter: 2010Q4

REPORT INFORMATION
  Report Type: 
  Country: None (occurrence: None)
  Receive Date: 20101006
  Receipt Date: 20100929
  Transmission Date: 20110411
  Serious: Yes (Hospitalization)
  Sender: FDA-Public Use
  Company Number: US-BRISTOL-MYERS SQUIBB COMPANY-15309974

PATIENT
  Age: 53 Year
  Sex: Male
  Weight: 68 kg

DRUGS (1)
  1. DASATINIB [Suspect]
     Indication: SALIVARY GLAND CANCER
     Dosage: CYCLE:28DAYS TOTAL COURSE:2 COURSE 2 START DATE 20AUG10 HOLD ON 3SEP10
     Route: 048
     Dates: start: 20100723, end: 20100903

REACTIONS (1)
  - HYPOXIA [None]
